FAERS Safety Report 9645696 (Version 1)
Quarter: 2013Q4

REPORT INFORMATION
  Report Type: Spontaneous
  Country: CY (occurrence: CY)
  Receive Date: 20131025
  Receipt Date: 20131025
  Transmission Date: 20140711
  Serious: Yes (Death)
  Sender: FDA-Public Use
  Company Number: CY-JNJFOC-20131011199

PATIENT
  Age: 74 Year
  Sex: Male

DRUGS (4)
  1. ZYTIGA [Suspect]
     Indication: PROSTATE CANCER METASTATIC
     Dosage: 4*250 MG
     Route: 048
     Dates: start: 201303, end: 201305
  2. ZYTIGA [Suspect]
     Indication: PROSTATE CANCER METASTATIC
     Dosage: 4*250 MG
     Route: 048
     Dates: start: 201206, end: 201209
  3. GOSERELIN [Suspect]
     Indication: PRODUCT USED FOR UNKNOWN INDICATION
     Route: 065
  4. DOCETAXEL [Suspect]
     Indication: PROSTATE CANCER METASTATIC
     Dosage: 7 COURSES
     Route: 065

REACTIONS (2)
  - Cardiac disorder [Fatal]
  - Prostatic specific antigen increased [Unknown]
